FAERS Safety Report 5397580-9 (Version None)
Quarter: 2007Q3

REPORT INFORMATION
  Report Type: 
  Country: None (occurrence: None)
  Receive Date: 20070726
  Receipt Date: 20070719
  Transmission Date: 20080115
  Serious: Yes (Hospitalization)
  Sender: FDA-Public Use
  Company Number: ES-ROCHE-507890

PATIENT
  Age: 60 Year
  Sex: Female
  Weight: 72 kg

DRUGS (5)
  1. CAPECITABINE [Suspect]
     Indication: METASTATIC GASTRIC CANCER
     Dosage: GIVEN ON DAYS 1-14 OF EACH 3-WEEK-CYCLE.
     Route: 048
     Dates: start: 20070524, end: 20070625
  2. CISPLATIN [Suspect]
     Indication: METASTATIC GASTRIC CANCER
     Dosage: GIVEN ON DAY ONE OF EACH 3-WEEK-CYCLE.
     Route: 042
     Dates: start: 20070524, end: 20070625
  3. OMEPRAZOLE [Concomitant]
     Dates: start: 20020101
  4. PAROXETINA [Concomitant]
  5. SIMVASTATINA [Concomitant]
     Dates: start: 20070421

REACTIONS (8)
  - ABDOMINAL PAIN [None]
  - ASTHENIA [None]
  - DIZZINESS [None]
  - DRUG TOXICITY [None]
  - GENERAL PHYSICAL HEALTH DETERIORATION [None]
  - HYPOKALAEMIA [None]
  - SYNCOPE VASOVAGAL [None]
  - VOMITING [None]
